FAERS Safety Report 23249401 (Version 1)
Quarter: 2023Q4

REPORT INFORMATION
  Report Type: Spontaneous
  Country: CN (occurrence: CN)
  Receive Date: 20231201
  Receipt Date: 20231201
  Transmission Date: 20240110
  Serious: Yes (Other)
  Sender: FDA-Public Use
  Company Number: None

PATIENT
  Age: 51 Year
  Sex: Female
  Weight: 75 kg

DRUGS (3)
  1. CYCLOPHOSPHAMIDE [Suspect]
     Active Substance: CYCLOPHOSPHAMIDE
     Indication: Breast cancer female
     Dosage: 1 G, ONE TIME IN ONE DAY, DILUTED WITH 100 ML OF 0.9 % SODIUM CHLORIDE, TWO TIMES
     Route: 041
     Dates: start: 20231004, end: 20231004
  2. CYCLOPHOSPHAMIDE [Suspect]
     Active Substance: CYCLOPHOSPHAMIDE
     Indication: Chemotherapy
  3. SODIUM CHLORIDE [Suspect]
     Active Substance: SODIUM CHLORIDE
     Indication: Medication dilution
     Dosage: (0.9%),100 ML, ONE TIME IN ONE DAY, USED TO DILUTE 1 G OF CYCLOPHOSPHAMIDE, TWO TIMES
     Route: 041
     Dates: start: 20231004, end: 20231004

REACTIONS (1)
  - White blood cell count decreased [Recovering/Resolving]

NARRATIVE: CASE EVENT DATE: 20231023
